FAERS Safety Report 6347460-7 (Version None)
Quarter: 2009Q3

REPORT INFORMATION
  Report Type: 
  Country: None (occurrence: None)
  Receive Date: 20090910
  Receipt Date: 20090902
  Transmission Date: 20100115
  Serious: No
  Sender: FDA-Public Use
  Company Number: US-B.I. PHARMACEUTICALS,INC./RIDGEFIELD-2009-BP-10361BP

PATIENT
  Sex: Female

DRUGS (5)
  1. SPIRIVA [Suspect]
     Dosage: 18 MCG
     Route: 055
     Dates: start: 20090601
  2. SPIRIVA [Suspect]
     Dosage: 18 MCG
     Route: 055
     Dates: start: 20090725
  3. LIPITOR [Concomitant]
     Indication: BLOOD CHOLESTEROL INCREASED
     Dates: start: 19770101
  4. LISINOPRIL [Concomitant]
     Indication: HYPERTENSION
     Dates: start: 19840101
  5. ADVAIR HFA [Concomitant]
     Indication: DYSPNOEA

REACTIONS (3)
  - DRY MOUTH [None]
  - SOMNOLENCE [None]
  - URINARY HESITATION [None]
